FAERS Safety Report 23239284 (Version 1)
Quarter: 2023Q4

REPORT INFORMATION
  Report Type: Report from Study
  Country: US (occurrence: US)
  Receive Date: 20231129
  Receipt Date: 20231129
  Transmission Date: 20240110
  Serious: Yes (Disabling, Other)
  Sender: FDA-Public Use
  Company Number: US-HORIZON THERAPEUTICS-HZN-2021-007864

PATIENT

DRUGS (2)
  1. TEPEZZA [Suspect]
     Active Substance: TEPROTUMUMAB-TRBW
     Indication: Endocrine ophthalmopathy
     Dosage: 1ST INFUSION
     Route: 042
     Dates: start: 20211007, end: 202112
  2. TEPEZZA [Suspect]
     Active Substance: TEPROTUMUMAB-TRBW
     Dosage: FOURTH INFUSION
     Route: 042
     Dates: start: 20211210, end: 202112

REACTIONS (15)
  - Endocrine ophthalmopathy [None]
  - Condition aggravated [None]
  - Disability [Not Recovered/Not Resolved]
  - Deafness [Not Recovered/Not Resolved]
  - Blood pressure fluctuation [Unknown]
  - Urinary tract infection [Unknown]
  - Injury [Not Recovered/Not Resolved]
  - Pain [Not Recovered/Not Resolved]
  - Anxiety [Not Recovered/Not Resolved]
  - Impaired quality of life [Not Recovered/Not Resolved]
  - Economic problem [Not Recovered/Not Resolved]
  - Product quality issue [Unknown]
  - Headache [Recovering/Resolving]
  - Diarrhoea [Unknown]
  - Tinnitus [Not Recovered/Not Resolved]
